FAERS Safety Report 4962470-X (Version None)
Quarter: 2006Q1

REPORT INFORMATION
  Report Type: 
  Country: None (occurrence: None)
  Receive Date: 20060329
  Receipt Date: 20060323
  Transmission Date: 20060701
  Serious: Yes (Other)
  Sender: FDA-Public Use
  Company Number: S06-USA-01098-01

PATIENT
  Age: 38 Year
  Sex: Female

DRUGS (2)
  1. LEXAPRO [Suspect]
     Dosage: 5 MG QD PO
     Route: 048
     Dates: start: 20050302
  2. WELLBUTRIN [Suspect]
     Indication: DEPRESSION
     Dosage: 200 MG  BID
     Dates: start: 20050126, end: 20050304

REACTIONS (1)
  - GRAND MAL CONVULSION [None]
